FAERS Safety Report 20705861 (Version 1)
Quarter: 2022Q2

REPORT INFORMATION
  Report Type: Spontaneous
  Country: US (occurrence: US)
  Receive Date: 20220413
  Receipt Date: 20220413
  Transmission Date: 20220720
  Serious: No
  Sender: FDA-Public Use
  Company Number: US-PERRIGO-21US009647

PATIENT
  Age: 72 Year
  Sex: Female
  Weight: 60.771 kg

DRUGS (2)
  1. CLOBETASOL PROPIONATE [Suspect]
     Active Substance: CLOBETASOL PROPIONATE
     Indication: Lichen planopilaris
     Dosage: SMALL AMOUNT, BID
     Route: 061
     Dates: start: 202105, end: 20210711
  2. CLOBETASOL PROPIONATE [Suspect]
     Active Substance: CLOBETASOL PROPIONATE
     Dosage: SMALL AMOUNT, SINGLE
     Route: 061
     Dates: start: 20210712, end: 20210712

REACTIONS (2)
  - Off label use [Recovered/Resolved]
  - Incorrect product administration duration [Recovered/Resolved]

NARRATIVE: CASE EVENT DATE: 20210501
